FAERS Safety Report 20584490 (Version 1)
Quarter: 2022Q1

REPORT INFORMATION
  Report Type: Spontaneous
  Country: US (occurrence: US)
  Receive Date: 20220311
  Receipt Date: 20220311
  Transmission Date: 20220424
  Serious: No
  Sender: FDA-Public Use
  Company Number: US-AGILE THERAPEUTICS, INC.-US-AGI-2022-000168

PATIENT
  Age: 13 Year
  Sex: Female
  Weight: 65.76 kg

DRUGS (10)
  1. TWIRLA [Suspect]
     Active Substance: ETHINYL ESTRADIOL\LEVONORGESTREL
     Indication: Endometriosis
     Dosage: 120 MCG/DAY LEVONORGESTREL AND 30 MCG/DAY ETHINYL ESTRADIOL
     Route: 062
     Dates: start: 20220125
  2. OMEPRAZOLE [Concomitant]
     Active Substance: OMEPRAZOLE
     Indication: Eosinophilic oesophagitis
     Dosage: 80 MILLIGRAM, QD
     Route: 065
     Dates: start: 20141110
  3. CARAFATE [Concomitant]
     Active Substance: SUCRALFATE
     Indication: Eosinophilic oesophagitis
     Dosage: 250 MILLIGRAM, Q4H PRN
     Route: 065
     Dates: start: 201411
  4. VITAMIN D SANDOZ [Concomitant]
     Indication: Eosinophilic oesophagitis
     Dosage: 1000 MILLIGRAM
     Route: 065
     Dates: start: 201411
  5. ALBUTEROL SULFATE [Concomitant]
     Active Substance: ALBUTEROL SULFATE
     Indication: Asthma
     Dosage: 2 PUFFS EVERY 4 HOURS PRN
     Route: 055
  6. NAPROXEN [Concomitant]
     Active Substance: NAPROXEN
     Indication: Ehlers-Danlos syndrome
     Dosage: 250 MILLIGRAM, BID PRN
     Route: 065
     Dates: start: 20140510
  7. FLONASE ALLERGY RELIEF [Concomitant]
     Active Substance: FLUTICASONE PROPIONATE
     Indication: Asthma
     Dosage: 2 SQUIRTS TO EACH NARES QD PRN
     Route: 045
     Dates: start: 201411
  8. FLONASE ALLERGY RELIEF [Concomitant]
     Active Substance: FLUTICASONE PROPIONATE
     Indication: Eosinophilic oesophagitis
  9. IBUPROFEN [Concomitant]
     Active Substance: IBUPROFEN
     Indication: Ehlers-Danlos syndrome
     Dosage: 600 MILLIGRAM, Q8H FOR 3 DAYS PRN
     Route: 065
     Dates: start: 20140510
  10. TYLENOL 8HR [Concomitant]
     Active Substance: ACETAMINOPHEN
     Indication: Ehlers-Danlos syndrome
     Dosage: 325 MILLIGRAM 3 TIMES A WEEK PRN
     Route: 065
     Dates: start: 20140510

REACTIONS (2)
  - Product adhesion issue [Not Recovered/Not Resolved]
  - Product label confusion [Not Recovered/Not Resolved]

NARRATIVE: CASE EVENT DATE: 20220101
